FAERS Safety Report 4771470-4 (Version None)
Quarter: 2005Q3

REPORT INFORMATION
  Report Type: 
  Country: None (occurrence: None)
  Receive Date: 20050915
  Receipt Date: 20050830
  Transmission Date: 20060218
  Serious: Yes (Other)
  Sender: FDA-Public Use
  Company Number: 2005PV001024

PATIENT
  Age: 54 Year
  Sex: Female
  Weight: 67.1324 kg

DRUGS (9)
  1. SYMLIN [Suspect]
     Indication: DIABETES MELLITUS INSULIN-DEPENDENT
     Dosage: QD; SC; 45 MCG; TID; SC; 30 MCG; TID; SC; 15 MCG; TID; SC
     Route: 058
     Dates: start: 20050801, end: 20050812
  2. SYMLIN [Suspect]
     Indication: DIABETES MELLITUS INSULIN-DEPENDENT
     Dosage: QD; SC; 45 MCG; TID; SC; 30 MCG; TID; SC; 15 MCG; TID; SC
     Route: 058
     Dates: start: 20050815, end: 20050815
  3. SYMLIN [Suspect]
     Indication: DIABETES MELLITUS INSULIN-DEPENDENT
     Dosage: QD; SC; 45 MCG; TID; SC; 30 MCG; TID; SC; 15 MCG; TID; SC
     Route: 058
     Dates: start: 20050701
  4. SYMLIN [Suspect]
     Indication: DIABETES MELLITUS INSULIN-DEPENDENT
     Dosage: QD; SC; 45 MCG; TID; SC; 30 MCG; TID; SC; 15 MCG; TID; SC
     Route: 058
     Dates: start: 20050719
  5. LANTUS [Concomitant]
  6. HUMALOG [Concomitant]
  7. TIAZAC [Concomitant]
  8. AVAPRO [Concomitant]
  9. LIPITOR [Concomitant]

REACTIONS (15)
  - ABDOMINAL PAIN UPPER [None]
  - BLOOD GLUCOSE DECREASED [None]
  - CONSTIPATION [None]
  - DECREASED APPETITE [None]
  - DEHYDRATION [None]
  - DIZZINESS [None]
  - EARLY SATIETY [None]
  - GASTROENTERITIS [None]
  - GASTROINTESTINAL DISORDER [None]
  - LOSS OF CONSCIOUSNESS [None]
  - NAUSEA [None]
  - ORAL INTAKE REDUCED [None]
  - RETCHING [None]
  - VOMITING [None]
  - WEIGHT DECREASED [None]
